FAERS Safety Report 5084023-8 (Version None)
Quarter: 2006Q3

REPORT INFORMATION
  Report Type: 
  Country: None (occurrence: None)
  Receive Date: 20060726
  Receipt Date: 20060106
  Transmission Date: 20061208
  Serious: Yes (Other)
  Sender: FDA-Public Use
  Company Number: USA-2006-0022446

PATIENT

DRUGS (4)
  1. MS CONTIN [Suspect]
     Indication: DRUG USE FOR UNKNOWN INDICATION
     Dosage: 15 MG, TID
  2. XANAX [Concomitant]
  3. BENTYL [Concomitant]
  4. PHENERGAN ^WYETH-AYERST^ [Concomitant]

REACTIONS (11)
  - ANXIETY [None]
  - CYST [None]
  - DRUG DEPENDENCE [None]
  - DRUG WITHDRAWAL SYNDROME [None]
  - DRY SKIN [None]
  - FEELING COLD [None]
  - GASTROINTESTINAL PAIN [None]
  - GOITRE [None]
  - NERVOUSNESS [None]
  - TRICHORRHEXIS [None]
  - WEIGHT INCREASED [None]
